FAERS Safety Report 18545453 (Version 1)
Quarter: 2020Q4

REPORT INFORMATION
  Report Type: Spontaneous
  Country: DE (occurrence: DE)
  Receive Date: 20201125
  Receipt Date: 20201125
  Transmission Date: 20210114
  Serious: Yes (Life-Threatening, Hospitalization, Other)
  Sender: FDA-Public Use
  Company Number: DE-MYLANLABS-2020M1096249

PATIENT
  Age: 78 Year
  Sex: Female

DRUGS (15)
  1. COLECALCIFEROL [Concomitant]
     Active Substance: CHOLECALCIFEROL
     Dosage: UNK, QD (1000 IE, 1-0-0-0)
  2. MIRTAZAPIN [Concomitant]
     Active Substance: MIRTAZAPINE
     Dosage: 30 MILLIGRAM, QD (30 MG, 0-0-0-1)
  3. PREGABALIN. [Suspect]
     Active Substance: PREGABALIN
     Indication: PRODUCT USED FOR UNKNOWN INDICATION
     Dosage: 25 MILLIGRAM, TID (25 MG, 1-1-1-0)
  4. TORASEMID [Concomitant]
     Active Substance: TORSEMIDE
     Dosage: 50 MILLIGRAM, BID (50 MG, 1-1-0-0)
  5. REKAWAN [Concomitant]
     Active Substance: POTASSIUM CHLORIDE
     Dosage: 600 MG, 2-2-2-0, RETARD
  6. NALOXONE W/TILIDINE [Concomitant]
     Active Substance: NALOXONE HYDROCHLORIDE\TILIDINE HYDROCHLORIDE
     Dosage: UNK, BID (4|50 MG, 1-0-0-1)
  7. QUETIAPINE. [Suspect]
     Active Substance: QUETIAPINE
     Indication: PRODUCT USED FOR UNKNOWN INDICATION
     Dosage: 100 MILLIGRAM, QD (100 MG, 0-0-0-1)
  8. METAMIZOL                          /06276701/ [Concomitant]
     Active Substance: METAMIZOLE
     Dosage: 500 MILLIGRAM, TID (500 MG, 1-1-1-0)
  9. PANTOPRAZOL                        /01263201/ [Concomitant]
     Active Substance: PANTOPRAZOLE
     Dosage: 40 MILLIGRAM, BID (40 MG, 1-0-1-0)
  10. EDOXABAN [Suspect]
     Active Substance: EDOXABAN TOSYLATE
     Indication: PRODUCT USED FOR UNKNOWN INDICATION
     Dosage: 60 MILLIGRAM, QD (60 MG, 1-0-0-0)
  11. BISOPROLOL [Concomitant]
     Active Substance: BISOPROLOL
     Dosage: 5 MILLIGRAM, BID (5 MG, 1-0-0-1)
  12. LEVEMIR [Concomitant]
     Active Substance: INSULIN DETEMIR
     Dosage: UNK, QD (5 IE, 0-0-1-0)
  13. LERCANIDIPINE [Concomitant]
     Active Substance: LERCANIDIPINE
     Dosage: 20 MILLIGRAM, QD (20 MG, 1-0-0-0)
  14. LORAZEPAM. [Suspect]
     Active Substance: LORAZEPAM
     Indication: PRODUCT USED FOR UNKNOWN INDICATION
     Dosage: 0.5 MILLIGRAM, QD (0.5 MG, 0-0-0-1)
  15. LIPROLOG [Concomitant]
     Active Substance: INSULIN LISPRO
     Dosage: ACCORDING TO SCHEME

REACTIONS (8)
  - Anaemia [Unknown]
  - Pallor [Unknown]
  - Abdominal distension [Unknown]
  - General physical health deterioration [Unknown]
  - Fatigue [Unknown]
  - Haematochezia [Unknown]
  - Weight decreased [Unknown]
  - Condition aggravated [Unknown]

NARRATIVE: CASE EVENT DATE: 20200728
